FAERS Safety Report 5269338-2 (Version None)
Quarter: 2007Q1

REPORT INFORMATION
  Report Type: 
  Country: None (occurrence: None)
  Receive Date: 20070319
  Receipt Date: 20070307
  Transmission Date: 20070707
  Serious: Yes (Hospitalization)
  Sender: FDA-Public Use
  Company Number: PH-PFIZER INC-2007018112

PATIENT
  Sex: Male
  Weight: 68.9 kg

DRUGS (8)
  1. SU-011,248 [Suspect]
     Indication: RENAL CELL CARCINOMA STAGE UNSPECIFIED
     Dosage: DAILY DOSE:37.5-TEXT:12.5MG/CAP-FREQ:3CAPOD:EVERYDAY
     Route: 048
     Dates: start: 20070206, end: 20070305
  2. ATENOLOL [Concomitant]
     Route: 048
  3. CALCIBLOC [Concomitant]
     Dosage: FREQ:OD
     Dates: start: 20020314
  4. FLUIMUCIL [Concomitant]
     Dates: start: 20041203
  5. FERROUS SULFATE [Concomitant]
     Dates: start: 20001102
  6. CALCIUM CARBONATE [Concomitant]
     Dates: start: 20001102
  7. NEUROBION [Concomitant]
     Dates: start: 20060302
  8. NEURONTIN [Concomitant]
     Dates: start: 20060328

REACTIONS (3)
  - GENERALISED OEDEMA [None]
  - PERICARDIAL EFFUSION [None]
  - PLEURAL EFFUSION [None]
